FAERS Safety Report 4643964-3 (Version None)
Quarter: 2005Q2

REPORT INFORMATION
  Report Type: 
  Country: None (occurrence: None)
  Receive Date: 20050425
  Receipt Date: 20030528
  Transmission Date: 20051028
  Serious: Yes (Hospitalization)
  Sender: FDA-Public Use
  Company Number: PHBS2003JP05576

PATIENT
  Age: 7 Year
  Sex: Female

DRUGS (4)
  1. METHYLPREDNISOLONE [Concomitant]
     Dosage: 1.5 MG/KG/D
  2. DILAZEP [Concomitant]
  3. SAIREI-TO [Concomitant]
  4. NEORAL [Suspect]
     Indication: NEPHROTIC SYNDROME
     Dosage: 2.5 MG/KG/D
     Route: 048
     Dates: start: 20030101

REACTIONS (7)
  - BLOOD PRESSURE INCREASED [None]
  - CONVULSION [None]
  - DEPRESSED LEVEL OF CONSCIOUSNESS [None]
  - GRAND MAL CONVULSION [None]
  - HEADACHE [None]
  - HYPERTENSIVE ENCEPHALOPATHY [None]
  - VISUAL ACUITY REDUCED [None]
